FAERS Safety Report 23577995 (Version 1)
Quarter: 2024Q1

REPORT INFORMATION
  Report Type: Report from Study
  Country: PT (occurrence: PT)
  Receive Date: 20240228
  Receipt Date: 20240228
  Transmission Date: 20240409
  Serious: Yes (Other)
  Sender: FDA-Public Use
  Company Number: PT-ABBVIE-4758944

PATIENT
  Age: 75 Year
  Sex: Female

DRUGS (14)
  1. CARBIDOPA\LEVODOPA [Suspect]
     Active Substance: CARBIDOPA\LEVODOPA
     Indication: Parkinson^s disease
     Dosage: MORN:10.2CC;MAIN:4.5CC/H;EXTRA:1CC?20 MG + 5 MG?FIRST ADMIN DATE: 2023
     Route: 050
     Dates: end: 202305
  2. CARBIDOPA\LEVODOPA [Suspect]
     Active Substance: CARBIDOPA\LEVODOPA
     Dosage: 20 MG + 5 MG MORN:17.2CC;MAIN:6.2CC/H;EXTRA:4.5CC
     Route: 050
     Dates: start: 20230628, end: 20230805
  3. CARBIDOPA\LEVODOPA [Suspect]
     Active Substance: CARBIDOPA\LEVODOPA
     Dosage: 20 MG + 5 MG (VIA PEG)?MORN:17.2CC;MAIN:UNK;EXTRA:5.5CC
     Route: 050
     Dates: start: 20230809, end: 20231006
  4. CARBIDOPA\LEVODOPA [Suspect]
     Active Substance: CARBIDOPA\LEVODOPA
     Dosage: LAST ADMIN DATE 2023 ?MORN:15.2CC;MAIN:5.7CC/H;EXTRA:3CC?20 MG + 5 MG
     Route: 050
     Dates: start: 20230327
  5. CARBIDOPA\LEVODOPA [Suspect]
     Active Substance: CARBIDOPA\LEVODOPA
     Dosage: 20 MG + 5 MG (VIA PEG), MORN:18.5CC;MAIN:6.8;EXTRA:5.8CC
     Route: 050
     Dates: start: 20240221
  6. CARBIDOPA\LEVODOPA [Suspect]
     Active Substance: CARBIDOPA\LEVODOPA
     Dosage: 20 MG + 5 MG MORN:17.2CC;MAIN:6CC/H;EXTRA:3.5CC
     Route: 050
     Dates: start: 20230616, end: 20230628
  7. CARBIDOPA\LEVODOPA [Suspect]
     Active Substance: CARBIDOPA\LEVODOPA
     Dosage: 20 MG + 5 MG (VIA PEG)
     Route: 050
     Dates: start: 20230805, end: 20230809
  8. CARBIDOPA\LEVODOPA [Suspect]
     Active Substance: CARBIDOPA\LEVODOPA
     Dosage: 20 MG + 5 MG (VIA PEG)?FREQUENCY TEXT: MORN:17.2CC;MAIN:6.5;EXTRA:5.5CC
     Route: 050
     Dates: start: 20231006, end: 2024
  9. CARBIDOPA\LEVODOPA [Suspect]
     Active Substance: CARBIDOPA\LEVODOPA
     Dosage: 20 MG + 5 MG
     Route: 050
     Dates: start: 202305, end: 20230616
  10. CARBIDOPA\LEVODOPA [Suspect]
     Active Substance: CARBIDOPA\LEVODOPA
     Dosage: MORN:17.2CC;MAIN:6CC/H;EXTRA:3.5CC
     Route: 050
  11. CARBIDOPA\LEVODOPA [Suspect]
     Active Substance: CARBIDOPA\LEVODOPA
     Dosage: 20 MG + 5 MG (VIA PEG), MORN:17.2CC;MAIN:6.8;EXTRA:5.8CC
     Route: 050
     Dates: start: 2024, end: 20240221
  12. ATORVASTATIN [Concomitant]
     Active Substance: ATORVASTATIN
     Indication: Dyslipidaemia
     Dosage: 1 TABLET?FORM STRENGTH: 10 MILLIGRAM  ?START DATE TEXT: BEFORE DUODOPA
     Route: 048
  13. OMEPRAZOLE [Concomitant]
     Active Substance: OMEPRAZOLE
     Indication: Product used for unknown indication
     Dosage: 1 TABLET? FORM STRENGTH: 20 MILLIGRAM START DATE TEXT: BEFORE DUODOPA
     Route: 048
  14. JANUVIA [Concomitant]
     Active Substance: SITAGLIPTIN PHOSPHATE
     Indication: Diabetes mellitus
     Dosage: 1 TABLET FORM STRENGTH: 100 MILLIGRAM START DATE TEXT: BEFORE DUODOPA
     Route: 048

REACTIONS (6)
  - Ear injury [Recovered/Resolved]
  - Bradykinesia [Not Recovered/Not Resolved]
  - Gait disturbance [Not Recovered/Not Resolved]
  - Musculoskeletal chest pain [Recovered/Resolved]
  - Product use issue [Unknown]
  - Fall [Not Recovered/Not Resolved]

NARRATIVE: CASE EVENT DATE: 20230101
